FAERS Safety Report 21902105 (Version 1)
Quarter: 2023Q1

REPORT INFORMATION
  Report Type: Spontaneous
  Country: CN (occurrence: CN)
  Receive Date: 20230124
  Receipt Date: 20230124
  Transmission Date: 20230417
  Serious: Yes (Other)
  Sender: FDA-Public Use
  Company Number: CN-ORGANON-O2301CHN001301

PATIENT
  Sex: Male

DRUGS (1)
  1. REMERON [Suspect]
     Active Substance: MIRTAZAPINE
     Indication: Poor quality sleep
     Dosage: HALF A TABLET, EVERY NIGHT
     Route: 048

REACTIONS (3)
  - COVID-19 pneumonia [Recovered/Resolved]
  - Extrasystoles [Unknown]
  - Product use in unapproved indication [Unknown]
